FAERS Safety Report 6227887-4 (Version None)
Quarter: 2009Q2

REPORT INFORMATION
  Report Type: 
  Country: None (occurrence: None)
  Receive Date: 20090612
  Receipt Date: 20090609
  Transmission Date: 20091009
  Serious: Yes (Hospitalization)
  Sender: FDA-Public Use
  Company Number: B0408804B

PATIENT
  Sex: Female
  Weight: 56.4 kg

DRUGS (4)
  1. LAPATINIB [Suspect]
     Dosage: 1TAB SIX TIMES PER DAY
     Route: 048
     Dates: start: 20050714
  2. LETROZOLE [Suspect]
     Dosage: 2.5MG PER DAY
     Route: 048
     Dates: start: 20050714
  3. PARACETAMOL [Concomitant]
     Dosage: 500MG AS REQUIRED
  4. IBUMETIN [Concomitant]
     Dosage: 600MG AS REQUIRED

REACTIONS (5)
  - AMNESIA [None]
  - DIZZINESS [None]
  - MALAISE [None]
  - NAUSEA [None]
  - PRESYNCOPE [None]
